FAERS Safety Report 5656400-5 (Version None)
Quarter: 2008Q1

REPORT INFORMATION
  Report Type: 
  Country: None (occurrence: None)
  Receive Date: 20080309
  Receipt Date: 20071219
  Transmission Date: 20080703
  Serious: No
  Sender: FDA-Public Use
  Company Number: US-BAYER-200714249BCC

PATIENT
  Age: 69 Year
  Sex: Female
  Weight: 57 kg

DRUGS (5)
  1. ALEVE [Suspect]
     Indication: BURSITIS
     Route: 048
     Dates: start: 20071218, end: 20071218
  2. ALEVE [Suspect]
     Route: 048
     Dates: start: 20071219
  3. EVISTA [Concomitant]
  4. TRIMATRIM [Concomitant]
  5. ZOLOFT [Concomitant]

REACTIONS (1)
  - NAUSEA [None]
